FAERS Safety Report 14567458 (Version 2)
Quarter: 2021Q1

REPORT INFORMATION
  Report Type: Report from Study
  Country: GB (occurrence: GB)
  Receive Date: 20180223
  Receipt Date: 20210128
  Transmission Date: 20210419
  Serious: Yes (Other)
  Sender: FDA-Public Use
  Company Number: GB-AUROBINDO-AUR-APL-2018-008598

PATIENT
  Age: 56 Year
  Sex: Female

DRUGS (4)
  1. PERINDOPRIL [Suspect]
     Active Substance: PERINDOPRIL
     Indication: HYPERTENSION
     Dosage: 8 MG, DAILY
     Route: 065
  2. SPIRONOLACTONE. [Suspect]
     Active Substance: SPIRONOLACTONE
     Indication: HYPERTENSION
     Dosage: 25 MILLIGRAM, DAILY
     Route: 065
  3. BISOPROLOL [Suspect]
     Active Substance: BISOPROLOL
     Indication: HYPERTENSION
     Dosage: 5 MILLIGRAM
     Route: 065
  4. LERCANIDIPINE [Suspect]
     Active Substance: LERCANIDIPINE
     Indication: HYPERTENSION
     Dosage: 20 MG, DAILY
     Route: 065

REACTIONS (7)
  - Renal artery fibromuscular dysplasia [Unknown]
  - Autoimmune thyroiditis [Unknown]
  - Blood thyroid stimulating hormone increased [Unknown]
  - Lethargy [Unknown]
  - Headache [Unknown]
  - Renal cyst [Unknown]
  - Renin increased [Unknown]

NARRATIVE: CASE EVENT DATE: 2014
